FAERS Safety Report 11553183 (Version 1)
Quarter: 2015Q3

REPORT INFORMATION
  Report Type: Spontaneous
  Country: US (occurrence: US)
  Receive Date: 20150925
  Receipt Date: 20150925
  Transmission Date: 20151125
  Serious: No
  Sender: FDA-Public Use
  Company Number: US-WATSON-2014-22206

PATIENT
  Age: 80 Year
  Sex: Female

DRUGS (1)
  1. DICYCLOMINE HYDROCHLORIDE (WATSON LABORATORIES) [Suspect]
     Active Substance: DICYCLOMINE HYDROCHLORIDE
     Indication: IRRITABLE BOWEL SYNDROME
     Dosage: UNK, TID, PRN
     Route: 048
     Dates: start: 201407

REACTIONS (1)
  - Drug ineffective [Not Recovered/Not Resolved]
